FAERS Safety Report 4414196-9 (Version None)
Quarter: 2004Q3

REPORT INFORMATION
  Report Type: 
  Country: None (occurrence: None)
  Receive Date: 20040729
  Receipt Date: 20040708
  Transmission Date: 20050211
  Serious: Yes (Hospitalization)
  Sender: FDA-Public Use
  Company Number: RB-794-2004

PATIENT
  Age: 42 Year
  Sex: Male

DRUGS (3)
  1. BUPRENORPHINE HYDROCHLORIDE [Suspect]
     Dosage: 8 MG QD SL
     Route: 060
  2. BROMAZEPAM [Suspect]
     Dosage: 60 MG QD PO
     Route: 048
  3. CLORAZEPATE DIPOTASSIUM [Suspect]
     Dosage: 500 MG QD PO
     Route: 048

REACTIONS (2)
  - DRUG ABUSER [None]
  - HYPOREFLEXIA [None]
